FAERS Safety Report 12153849 (Version 1)
Quarter: 2016Q1

REPORT INFORMATION
  Report Type: Spontaneous
  Country: CZ (occurrence: CZ)
  Receive Date: 20160307
  Receipt Date: 20160307
  Transmission Date: 20160526
  Serious: Yes (Hospitalization, Other)
  Sender: FDA-Public Use
  Company Number: CZ-SUN PHARMACEUTICAL INDUSTRIES LTD-2016R1-112608

PATIENT
  Age: 62 Year
  Sex: Female

DRUGS (1)
  1. METOPROLOL. [Suspect]
     Active Substance: METOPROLOL
     Indication: PRODUCT USED FOR UNKNOWN INDICATION
     Dosage: 100X 50 MGS PILLS
     Route: 065

REACTIONS (4)
  - Cardiac arrest [Recovered/Resolved]
  - Overdose [Recovered/Resolved]
  - Haemodynamic instability [Recovered/Resolved]
  - Toxicity to various agents [Recovered/Resolved]
